FAERS Safety Report 4452352-4 (Version None)
Quarter: 2004Q3

REPORT INFORMATION
  Report Type: 
  Country: None (occurrence: None)
  Receive Date: 20040916
  Receipt Date: 20040714
  Transmission Date: 20050211
  Serious: No
  Sender: FDA-Public Use
  Company Number: 2004AP03733

PATIENT
  Age: 54 Year
  Sex: Male
  Weight: 72 kg

DRUGS (2)
  1. NAROPIN [Suspect]
     Indication: LOCAL ANAESTHESIA
     Dosage: 17.5 ML ONCE PNEU
  2. CARBOCAIN [Suspect]
     Indication: LOCAL ANAESTHESIA
     Dosage: 17.5 ML ONCE

REACTIONS (5)
  - ANAESTHETIC COMPLICATION [None]
  - DRUG TOXICITY [None]
  - FEELING ABNORMAL [None]
  - PARAESTHESIA CIRCUMORAL [None]
  - RESTLESSNESS [None]
